FAERS Safety Report 7154076-1 (Version None)
Quarter: 2010Q4

REPORT INFORMATION
  Report Type: 
  Country: None (occurrence: None)
  Receive Date: 20101213
  Receipt Date: 20101201
  Transmission Date: 20110411
  Serious: Yes (Hospitalization)
  Sender: FDA-Public Use
  Company Number: CA-SANOFI-AVENTIS-2010SA073807

PATIENT
  Age: 77 Year
  Sex: Male
  Weight: 80 kg

DRUGS (16)
  1. LASIX [Suspect]
     Route: 048
     Dates: start: 20101021, end: 20101025
  2. LASIX [Suspect]
     Route: 048
     Dates: start: 20101026
  3. EPLERENONE [Suspect]
     Route: 048
     Dates: start: 20101021
  4. CARVEDILOL [Concomitant]
     Indication: HYPERTENSION
     Dates: start: 20100216
  5. GLYBURIDE [Concomitant]
     Indication: DIABETES MELLITUS
     Dosage: 2 TABLETS
     Route: 048
     Dates: start: 20100304, end: 20101102
  6. FLOMAX [Concomitant]
     Indication: PROSTATISM
     Dates: start: 20070618
  7. LIPITOR [Concomitant]
     Route: 048
     Dates: start: 20060717
  8. NITRO-DUR [Concomitant]
     Indication: ANGINA PECTORIS
     Dates: start: 20090422
  9. LISINOPRIL [Concomitant]
     Indication: HYPERTENSION
     Route: 048
     Dates: start: 20090122
  10. COUMADIN [Concomitant]
     Indication: ATRIAL FIBRILLATION
     Route: 048
     Dates: start: 20091105
  11. INSULIN [Concomitant]
     Indication: DIABETES MELLITUS
     Dosage: 30/70 IN THE MORNING
     Route: 058
     Dates: start: 20090507
  12. REGULAR INSULIN [Concomitant]
     Indication: DIABETES MELLITUS
     Dosage: AT DINNER
     Route: 058
     Dates: start: 20091029
  13. AMLODIPINE BESYLATE [Concomitant]
     Indication: MYOCARDIAL INFARCTION
     Dates: start: 20101005
  14. ASAPHEN [Concomitant]
     Indication: MYOCARDIAL INFARCTION
     Route: 048
     Dates: start: 20100822
  15. NASONEX [Concomitant]
     Dosage: NASAL PUFFS
     Route: 045
     Dates: start: 20021007
  16. NOVORAPID [Concomitant]
     Indication: DIABETES MELLITUS
     Dosage: AT LUNCH
     Route: 058
     Dates: start: 20100708

REACTIONS (1)
  - CARDIAC FAILURE [None]
